FAERS Safety Report 9641955 (Version 1)
Quarter: 2013Q4

REPORT INFORMATION
  Report Type: Spontaneous
  Country: GB (occurrence: None)
  Receive Date: 20131022
  Receipt Date: 20131022
  Transmission Date: 20140711
  Serious: Yes (Hospitalization, Other)
  Sender: FDA-Public Use
  Company Number: AUR-APL-2013-08574

PATIENT
  Age: 79 Year
  Sex: Female

DRUGS (1)
  1. DONEPEZIL [Suspect]
     Indication: DEMENTIA
     Dosage: DAILY VARYING DOSES, RANGING FROM 2.5-15 MG

REACTIONS (15)
  - Hip fracture [None]
  - Fall [None]
  - Aphasia [None]
  - Aphasia [None]
  - Hallucinations, mixed [None]
  - Emotional distress [None]
  - Fluid overload [None]
  - Oedema peripheral [None]
  - Mental status changes [None]
  - Confusional state [None]
  - Drooling [None]
  - Depression [None]
  - Cognitive disorder [None]
  - Abnormal behaviour [None]
  - Victim of elder abuse [None]
